FAERS Safety Report 15598105 (Version 1)
Quarter: 2018Q4

REPORT INFORMATION
  Report Type: Spontaneous
  Country: JP (occurrence: JP)
  Receive Date: 20181108
  Receipt Date: 20181108
  Transmission Date: 20190205
  Serious: Yes (Hospitalization)
  Sender: FDA-Public Use
  Company Number: JP-NOVAST LABORATORIES, LTD-JP-2018NOV000395

PATIENT
  Age: 66 Year
  Sex: Male

DRUGS (2)
  1. CARISOPRODOL\ASPIRIN [Suspect]
     Active Substance: ASPIRIN\CARISOPRODOL
     Dosage: UNK, RESTARTED
  2. CARISOPRODOL\ASPIRIN [Suspect]
     Active Substance: ASPIRIN\CARISOPRODOL
     Indication: MYOCARDIAL INFARCTION
     Dosage: UNK, QD

REACTIONS (1)
  - Spinal epidural haematoma [Recovered/Resolved]
